FAERS Safety Report 4765771-3 (Version None)
Quarter: 2005Q3

REPORT INFORMATION
  Report Type: 
  Country: None (occurrence: None)
  Receive Date: 20050912
  Receipt Date: 20050902
  Transmission Date: 20060218
  Serious: Yes (Other)
  Sender: FDA-Public Use
  Company Number: 200512973EU

PATIENT
  Age: 58 Year
  Sex: Female

DRUGS (2)
  1. ENOXAPARIN SODIUM [Suspect]
     Indication: THROMBOSIS PROPHYLAXIS
     Dates: start: 20050806
  2. VICODIN [Concomitant]

REACTIONS (2)
  - ABDOMINAL PAIN [None]
  - THROMBOCYTHAEMIA [None]
